FAERS Safety Report 18377096 (Version 1)
Quarter: 2020Q4

REPORT INFORMATION
  Report Type: Spontaneous
  Country: FR (occurrence: FR)
  Receive Date: 20201013
  Receipt Date: 20201013
  Transmission Date: 20210114
  Serious: No
  Sender: FDA-Public Use
  Company Number: FR-JNJFOC-20201002752

PATIENT
  Age: 29 Year
  Sex: Female

DRUGS (1)
  1. STELARA [Suspect]
     Active Substance: USTEKINUMAB
     Indication: CROHN^S DISEASE
     Dosage: SECOND DOSE IN SEP-2020
     Dates: start: 20200615

REACTIONS (2)
  - Gamma-glutamyltransferase increased [Unknown]
  - Transaminases increased [Unknown]
